FAERS Safety Report 20314294 (Version 2)
Quarter: 2022Q1

REPORT INFORMATION
  Report Type: Spontaneous
  Country: US (occurrence: US)
  Receive Date: 20220109
  Receipt Date: 20220222
  Transmission Date: 20220423
  Serious: No
  Sender: FDA-Public Use
  Company Number: US-SA-SAC20220106000271

PATIENT
  Age: 51 Year
  Sex: Female

DRUGS (3)
  1. AUBAGIO [Suspect]
     Active Substance: TERIFLUNOMIDE
     Indication: Multiple sclerosis
     Dosage: 1 DF, QD
     Route: 048
     Dates: start: 20210323
  2. BACLOFEN [Concomitant]
     Active Substance: BACLOFEN
     Dosage: UNK UNK, TOTAL
  3. LYRICA [Concomitant]
     Active Substance: PREGABALIN

REACTIONS (1)
  - Product dose omission issue [Unknown]
